FAERS Safety Report 12171060 (Version 2)
Quarter: 2016Q1

REPORT INFORMATION
  Report Type: Spontaneous
  Country: IT (occurrence: IT)
  Receive Date: 20160311
  Receipt Date: 20160318
  Transmission Date: 20160526
  Serious: Yes (Death, Other)
  Sender: FDA-Public Use
  Company Number: PHHY2016IT025585

PATIENT
  Age: 82 Year
  Sex: Female

DRUGS (2)
  1. REVOLADE [Suspect]
     Active Substance: ELTROMBOPAG
     Indication: THROMBOCYTOPENIA
     Dosage: 50 MG, UNK
     Route: 065
     Dates: start: 20150718
  2. REVOLADE [Suspect]
     Active Substance: ELTROMBOPAG
     Dosage: 75 MG, QD (FOR 7 MONTHS)
     Route: 048

REACTIONS (6)
  - Ventricular fibrillation [Unknown]
  - Acute myocardial infarction [Fatal]
  - Chest pain [Fatal]
  - Osteoporosis [Unknown]
  - Drug ineffective [Unknown]
  - Back pain [Unknown]

NARRATIVE: CASE EVENT DATE: 20151201
